FAERS Safety Report 8206588-7 (Version None)
Quarter: 2012Q1

REPORT INFORMATION
  Report Type: 
  Country: None (occurrence: None)
  Receive Date: 20120313
  Receipt Date: 20120306
  Transmission Date: 20120608
  Serious: Yes (Hospitalization)
  Sender: FDA-Public Use
  Company Number: JP-VERTEX PHARMACEUTICALS INC.-AE-2012-003435

PATIENT
  Age: 64 Year
  Sex: Male

DRUGS (6)
  1. PEGINTERFERON [Concomitant]
     Indication: HEPATITIS C
     Route: 058
     Dates: start: 20120120
  2. TELAVIC (TELAPREVIR) [Suspect]
     Indication: HEPATITIS C
     Route: 048
     Dates: start: 20120120, end: 20120216
  3. RIBAVIRIN [Concomitant]
     Route: 048
     Dates: start: 20120127, end: 20120224
  4. TELAVIC (TELAPREVIR) [Suspect]
     Route: 048
     Dates: start: 20120217
  5. RIBAVIRIN [Concomitant]
     Indication: HEPATITIS C
     Route: 048
     Dates: start: 20120120, end: 20120126
  6. RIBAVIRIN [Concomitant]
     Route: 048
     Dates: start: 20120225

REACTIONS (9)
  - MALAISE [None]
  - DECREASED APPETITE [None]
  - HYPERURICAEMIA [None]
  - HAEMOGLOBIN DECREASED [None]
  - WHITE BLOOD CELL COUNT DECREASED [None]
  - PAPULE [None]
  - INSOMNIA [None]
  - PYREXIA [None]
  - PLATELET COUNT DECREASED [None]
